FAERS Safety Report 6806613-1 (Version None)
Quarter: 2010Q2

REPORT INFORMATION
  Report Type: 
  Country: None (occurrence: None)
  Receive Date: 20100629
  Receipt Date: 20081021
  Transmission Date: 20101027
  Serious: No
  Sender: FDA-Public Use
  Company Number: US-PFIZER INC-2008016203

PATIENT
  Sex: Male

DRUGS (9)
  1. TIKOSYN [Suspect]
     Indication: ATRIAL FIBRILLATION
     Dates: start: 20080201
  2. LIPITOR [Concomitant]
     Route: 048
  3. ZESTRIL [Concomitant]
     Route: 048
  4. WARFARIN SODIUM [Concomitant]
     Route: 048
  5. ATENOLOL [Concomitant]
     Route: 048
  6. NIACIN [Concomitant]
     Route: 048
  7. ACETYLSALICYLIC ACID [Concomitant]
     Route: 048
  8. LISINOPRIL [Concomitant]
     Route: 048
  9. VITAMIN B COMPLEX CAP [Concomitant]

REACTIONS (4)
  - FEELING COLD [None]
  - HYPERTENSION [None]
  - SINUS BRADYCARDIA [None]
  - SLUGGISHNESS [None]
